FAERS Safety Report 4477203-3 (Version None)
Quarter: 2004Q4

REPORT INFORMATION
  Report Type: 
  Country: None (occurrence: None)
  Receive Date: 20041013
  Receipt Date: 19970923
  Transmission Date: 20050328
  Serious: Yes (Death, Life-Threatening, Hospitalization)
  Sender: FDA-Public Use
  Company Number: PR/970923/247

PATIENT
  Age: 22 Year
  Sex: Male

DRUGS (1)
  1. BUPRENORPHINE HCL [Suspect]
     Indication: INTENTIONAL MISUSE
     Dosage: IV
     Route: 042
     Dates: start: 19970512, end: 19970515

REACTIONS (11)
  - ARTERIAL OCCLUSIVE DISEASE [None]
  - ASCITES [None]
  - INTENTIONAL MISUSE [None]
  - PERICARDITIS [None]
  - PERITONEAL HAEMORRHAGE [None]
  - PLEURAL EFFUSION [None]
  - PULMONARY HYPERTENSION [None]
  - PULMONARY VASCULAR DISORDER [None]
  - RENAL FAILURE ACUTE [None]
  - SHOCK [None]
  - STAPHYLOCOCCAL INFECTION [None]
